FAERS Safety Report 9652871 (Version 1)
Quarter: 2013Q4

REPORT INFORMATION
  Report Type: Spontaneous
  Country: IT (occurrence: IT)
  Receive Date: 20131029
  Receipt Date: 20131029
  Transmission Date: 20140711
  Serious: Yes (Hospitalization)
  Sender: FDA-Public Use
  Company Number: IT-TEVA-439066ISR

PATIENT
  Age: 68 Year
  Sex: Male

DRUGS (4)
  1. FLUOROURACILE TEVA [Suspect]
     Indication: PANCREATIC CARCINOMA
     Dosage: 4280 MG CYCLICAL
     Route: 042
     Dates: start: 20130730, end: 20130925
  2. IRINOTECAN KABI [Suspect]
     Indication: PANCREATIC CARCINOMA
     Dosage: 275MG CYCLICAL
     Route: 041
     Dates: start: 20130730, end: 20130925
  3. OXALIPLATINO SUN [Suspect]
     Indication: PANCREATIC CARCINOMA
     Dosage: 130MG CYCLICAL
     Route: 041
     Dates: start: 20130730, end: 20130925
  4. NEULASTA 6MG [Concomitant]
     Dosage: 1 DOSAGE FORMS DAILY;
     Route: 058
     Dates: start: 20130928, end: 20130928

REACTIONS (6)
  - Thrombocytopenia [Not Recovered/Not Resolved]
  - Neutropenia [Not Recovered/Not Resolved]
  - Hyponatraemia [Not Recovered/Not Resolved]
  - Dysphagia [Not Recovered/Not Resolved]
  - Diarrhoea [Not Recovered/Not Resolved]
  - Nausea [Not Recovered/Not Resolved]
